FAERS Safety Report 7934431-X (Version None)
Quarter: 2011Q4

REPORT INFORMATION
  Report Type: 
  Country: None (occurrence: None)
  Receive Date: 20111122
  Receipt Date: 20111118
  Transmission Date: 20120403
  Serious: Yes (Other)
  Sender: FDA-Public Use
  Company Number: US-GLAXOSMITHKLINE-A0953909A

PATIENT
  Age: 76 Year
  Sex: Female

DRUGS (9)
  1. VESICARE [Concomitant]
  2. CALCIUM SUPPLEMENTS [Concomitant]
  3. VENTOLIN [Concomitant]
  4. SIMVASTATIN [Concomitant]
  5. VITAMIN TAB [Concomitant]
  6. ADVAIR DISKUS 100/50 [Suspect]
     Indication: ASTHMA
     Dosage: 1PUFF TWICE PER DAY
     Route: 055
  7. TRAMADOL HCL [Suspect]
     Indication: BACK PAIN
     Dosage: 50MG UNKNOWN
     Route: 065
     Dates: start: 20111107
  8. SYNTHROID [Concomitant]
  9. FLUTICASONE PROPIONATE [Concomitant]

REACTIONS (3)
  - ASTHMA [None]
  - INHALATION THERAPY [None]
  - THROAT IRRITATION [None]
